FAERS Safety Report 13084700 (Version 2)
Quarter: 2017Q1

REPORT INFORMATION
  Report Type: Spontaneous
  Country: US (occurrence: US)
  Receive Date: 20170104
  Receipt Date: 20170111
  Transmission Date: 20170428
  Serious: Yes (Death)
  Sender: FDA-Public Use
  Company Number: US-JNJFOC-20161227056

PATIENT
  Age: 40 Year
  Sex: Female

DRUGS (1)
  1. BENGAY ULTRA STRENGTH TUBE [Suspect]
     Active Substance: MENTHOL\METHYL SALICYLATE
     Indication: PAIN
     Dosage: 4-5 TIMES, DAILY
     Route: 061

REACTIONS (3)
  - Product use issue [Fatal]
  - Inappropriate schedule of drug administration [Fatal]
  - Death [Fatal]
